FAERS Safety Report 22334899 (Version 2)
Quarter: 2023Q2

REPORT INFORMATION
  Report Type: Spontaneous
  Country: US (occurrence: US)
  Receive Date: 20230518
  Receipt Date: 20230617
  Transmission Date: 20230722
  Serious: No
  Sender: FDA-Public Use
  Company Number: US-GSK-US2023AMR068972

PATIENT
  Sex: Female
  Weight: 86.168 kg

DRUGS (1)
  1. NUCALA [Suspect]
     Active Substance: MEPOLIZUMAB
     Indication: Nasal polyps
     Dosage: 100 MG
     Route: 058
     Dates: start: 20230306

REACTIONS (2)
  - Diabetic neuropathy [Unknown]
  - Condition aggravated [Unknown]
